FAERS Safety Report 7746172-2 (Version None)
Quarter: 2011Q3

REPORT INFORMATION
  Report Type: 
  Country: None (occurrence: None)
  Receive Date: 20110913
  Receipt Date: 20110907
  Transmission Date: 20111222
  Serious: Yes (Hospitalization)
  Sender: FDA-Public Use
  Company Number: DE-ROCHE-639567

PATIENT
  Sex: Female
  Weight: 56 kg

DRUGS (6)
  1. DOCETAXEL [Suspect]
     Dosage: FREQUENCY REPORTED AS DAY 21
     Route: 042
     Dates: start: 20090706
  2. CYCLOPHOSPHAMIDE [Suspect]
     Indication: BREAST CANCER
     Dosage: FREQUENCY REPORTED AS 21 D
     Route: 042
     Dates: start: 20090317
  3. BEVACIZUMAB [Suspect]
     Indication: BREAST CANCER
     Dosage: FREQUENCY REPORTED AS DAY 21. FORM TAKEN AS SOLUTION AS PER PROTOCOL.
     Route: 042
     Dates: start: 20090317
  4. BEVACIZUMAB [Suspect]
     Dosage: FREQUENCY REPORTED AS DAY 21
     Route: 042
     Dates: start: 20090706
  5. DOCETAXEL [Suspect]
     Indication: BREAST CANCER
     Dosage: FREQUENCY REPORTED AS DAY 21
     Route: 042
     Dates: start: 20090612
  6. EPIRUBICIN [Suspect]
     Indication: BREAST CANCER
     Dosage: FREQUENCY REPORTED AS 21 DAY
     Route: 042
     Dates: start: 20090317

REACTIONS (2)
  - ABDOMINAL PAIN [None]
  - MUCOSAL INFLAMMATION [None]
